FAERS Safety Report 9509590 (Version 1)
Quarter: 2013Q3

REPORT INFORMATION
  Report Type: Spontaneous
  Country: US (occurrence: US)
  Receive Date: 20130909
  Receipt Date: 20130909
  Transmission Date: 20140515
  Serious: Yes (Other)
  Sender: FDA-Public Use
  Company Number: US-BRISTOL-MYERS SQUIBB COMPANY-18971101

PATIENT
  Age: 26 Year
  Sex: Male
  Weight: 226.75 kg

DRUGS (3)
  1. ABILIFY [Suspect]
     Indication: BIPOLAR DISORDER
  2. FLUOXETINE [Concomitant]
  3. VISTARIL [Concomitant]

REACTIONS (2)
  - Weight increased [Unknown]
  - Blood triglycerides increased [Unknown]
